FAERS Safety Report 7992895-X (Version None)
Quarter: 2011Q4

REPORT INFORMATION
  Report Type: 
  Country: None (occurrence: None)
  Receive Date: 20111219
  Receipt Date: 20110825
  Transmission Date: 20120403
  Serious: No
  Sender: FDA-Public Use
  Company Number: US-ASTRAZENECA-2011SE51584

PATIENT

DRUGS (12)
  1. SYNTHROID [Concomitant]
  2. CEPHALEXIN [Concomitant]
  3. OMEPRAZOLE [Suspect]
     Route: 048
  4. CRESTOR [Suspect]
     Route: 048
  5. OMEPRAZOLE [Suspect]
     Route: 048
  6. SILVER SULFADIAZINE [Concomitant]
  7. CIPROFLOXACIN HCL [Concomitant]
  8. ETODOLAC [Concomitant]
  9. PREDNISONE TAB [Concomitant]
  10. MAGIC MW [Concomitant]
  11. OXAPROZIN [Concomitant]
  12. TRIAMCINOLONE [Concomitant]

REACTIONS (1)
  - PAIN [None]
